FAERS Safety Report 6532078-3 (Version None)
Quarter: 2010Q1

REPORT INFORMATION
  Report Type: 
  Country: None (occurrence: None)
  Receive Date: 20100108
  Receipt Date: 20091231
  Transmission Date: 20100710
  Serious: Yes (Life-Threatening, Hospitalization)
  Sender: FDA-Public Use
  Company Number: GXKR2009PL13972

PATIENT
  Age: 49 Year
  Sex: Male

DRUGS (6)
  1. ZOLPIDEM (NGX) [Suspect]
     Dosage: 10 MG, UNK
     Route: 065
  2. FENTANYL (NGX) [Suspect]
     Indication: PAIN
     Dosage: 50 UG
     Route: 062
  3. FENTANYL (NGX) [Suspect]
     Dosage: 75 UG
     Route: 062
     Dates: start: 20091117
  4. ALPRAZOLAM [Suspect]
     Dosage: 0.5 MG
     Route: 065
  5. ALPRAZOLAM [Suspect]
     Dosage: 1 G
     Route: 065
     Dates: start: 20091117
  6. INVESTIGATIONAL DRUG [Concomitant]
     Dosage: UNK
     Dates: start: 20090825

REACTIONS (6)
  - COMA [None]
  - LOSS OF CONSCIOUSNESS [None]
  - MECHANICAL VENTILATION [None]
  - MULTIPLE DRUG OVERDOSE INTENTIONAL [None]
  - PALLOR [None]
  - RESPIRATORY FAILURE [None]
